FAERS Safety Report 9176785 (Version 1)
Quarter: 2013Q1

REPORT INFORMATION
  Report Type: Spontaneous
  Country: FR (occurrence: FR)
  Receive Date: 20130321
  Receipt Date: 20130321
  Transmission Date: 20140127
  Serious: Yes (Life-Threatening, Hospitalization, Other)
  Sender: FDA-Public Use
  Company Number: FR-PFIZER INC-2013091979

PATIENT
  Age: 85 Year
  Sex: Female

DRUGS (7)
  1. CORDARONE [Suspect]
     Indication: ATRIAL FIBRILLATION
     Dosage: UNK
     Route: 048
     Dates: start: 201010, end: 20121229
  2. PREVISCAN [Concomitant]
     Dosage: UNK
  3. LITHIUM [Concomitant]
     Dosage: UNK
     Dates: end: 20130101
  4. DEPAKOTE [Concomitant]
     Dosage: UNK
  5. EUPRESSYL [Concomitant]
     Dosage: UNK
  6. SPIRIVA [Concomitant]
     Dosage: UNK
  7. SERETIDE [Concomitant]
     Dosage: UNK

REACTIONS (5)
  - Confusional state [Recovered/Resolved]
  - Bradycardia [Recovered/Resolved]
  - Fall [Unknown]
  - Blood pressure decreased [Unknown]
  - Renal impairment [Unknown]
